FAERS Safety Report 12245038 (Version 3)
Quarter: 2016Q2

REPORT INFORMATION
  Report Type: Spontaneous
  Country: US (occurrence: US)
  Receive Date: 20160407
  Receipt Date: 20160418
  Transmission Date: 20160815
  Serious: No
  Sender: FDA-Public Use
  Company Number: US-TEVA-624126USA

PATIENT
  Age: 32 Year
  Sex: Female

DRUGS (2)
  1. ZECUITY [Suspect]
     Active Substance: SUMATRIPTAN SUCCINATE
     Dosage: 6.5MG/4HOURS
     Route: 062
     Dates: start: 20160115, end: 20160115
  2. ZECUITY [Suspect]
     Active Substance: SUMATRIPTAN SUCCINATE
     Dosage: 6.5MG/4HOURS
     Route: 062
     Dates: start: 20160106, end: 20160106

REACTIONS (4)
  - Application site erythema [Recovered/Resolved]
  - Skin discolouration [Unknown]
  - Application site pain [Recovered/Resolved]
  - Application site erythema [Recovered/Resolved]

NARRATIVE: CASE EVENT DATE: 20160106
